FAERS Safety Report 8213216-3 (Version None)
Quarter: 2012Q1

REPORT INFORMATION
  Report Type: 
  Country: None (occurrence: None)
  Receive Date: 20120315
  Receipt Date: 20120229
  Transmission Date: 20120608
  Serious: Yes (Hospitalization, Other)
  Sender: FDA-Public Use
  Company Number: CHPA2012US003952

PATIENT
  Age: 52 Year
  Sex: Female

DRUGS (1)
  1. EXCEDRIN EXTRA STRENGTH TABLETS [Suspect]
     Indication: TOOTHACHE
     Dosage: 2 DF, PRN
     Route: 048

REACTIONS (4)
  - WEIGHT INCREASED [None]
  - OEDEMA PERIPHERAL [None]
  - HEPATIC CIRRHOSIS [None]
  - ABDOMINAL DISTENSION [None]
